FAERS Safety Report 23234728 (Version 1)
Quarter: 2023Q4

REPORT INFORMATION
  Report Type: Spontaneous
  Country: US (occurrence: None)
  Receive Date: 20231128
  Receipt Date: 20231128
  Transmission Date: 20240109
  Serious: Yes (Hospitalization)
  Sender: FDA-Public Use
  Company Number: None

PATIENT
  Age: 69 Year
  Sex: Male
  Weight: 78.1 kg

DRUGS (2)
  1. CARBOPLATIN [Suspect]
     Active Substance: CARBOPLATIN
     Dates: end: 20231121
  2. TAXOL [Suspect]
     Active Substance: PACLITAXEL
     Dates: end: 20231121

REACTIONS (3)
  - Diarrhoea [None]
  - Furuncle [None]
  - Debridement [None]

NARRATIVE: CASE EVENT DATE: 20231124
